FAERS Safety Report 5407364-0 (Version None)
Quarter: 2007Q3

REPORT INFORMATION
  Report Type: 
  Country: None (occurrence: None)
  Receive Date: 20070807
  Receipt Date: 20070530
  Transmission Date: 20080115
  Serious: Yes (Other)
  Sender: FDA-Public Use
  Company Number: CS-JNJFOC-20070600304

PATIENT
  Sex: Male
  Weight: 2.1 kg

DRUGS (3)
  1. TOPAMAX [Suspect]
     Indication: DRUG EXPOSURE DURING PREGNANCY
  2. LAMOTRIGINE [Concomitant]
     Indication: DRUG EXPOSURE DURING PREGNANCY
     Route: 064
  3. VALPROATE SODIUM [Concomitant]
     Indication: DRUG EXPOSURE DURING PREGNANCY
     Route: 064

REACTIONS (2)
  - HYPERBILIRUBINAEMIA [None]
  - INTRAVENTRICULAR HAEMORRHAGE NEONATAL [None]
